FAERS Safety Report 5949425-3 (Version None)
Quarter: 2008Q4

REPORT INFORMATION
  Report Type: 
  Country: None (occurrence: None)
  Receive Date: 20081112
  Receipt Date: 20081031
  Transmission Date: 20090506
  Serious: Yes (Other)
  Sender: FDA-Public Use
  Company Number: PHHY2008GR26778

PATIENT
  Age: 43 Year
  Sex: Male

DRUGS (1)
  1. SANDIMMUNE [Suspect]
     Route: 048

REACTIONS (1)
  - TONGUE PARALYSIS [None]
